FAERS Safety Report 6193116-3 (Version None)
Quarter: 2009Q2

REPORT INFORMATION
  Report Type: 
  Country: None (occurrence: None)
  Receive Date: 20090514
  Receipt Date: 20090514
  Transmission Date: 20091009
  Serious: No
  Sender: FDA-Public Use
  Company Number: None

PATIENT
  Sex: Male

DRUGS (2)
  1. TOBRADEX [Suspect]
     Indication: GLAUCOMA
     Dosage: AP 1 DROP TO EACH EYE 4-5 TIMES DAILY OPHTHALMIC
     Route: 047
     Dates: start: 19560101, end: 20070101
  2. TOBRADEX [Suspect]
     Indication: GLAUCOMA
     Dosage: AP 1 DROP TO EACH EYE 4-5 TIMES DAILY OPHTHALMIC
     Route: 047
     Dates: start: 19850101, end: 20070501

REACTIONS (6)
  - BLINDNESS [None]
  - CORNEAL ABRASION [None]
  - CORNEAL SCAR [None]
  - ENTROPION [None]
  - EYE IRRITATION [None]
  - OCULAR HYPERAEMIA [None]
